FAERS Safety Report 7589800-7 (Version None)
Quarter: 2011Q3

REPORT INFORMATION
  Report Type: 
  Country: None (occurrence: None)
  Receive Date: 20110705
  Receipt Date: 20110628
  Transmission Date: 20111222
  Serious: Yes (Death)
  Sender: FDA-Public Use
  Company Number: MA-PFIZER INC-2011143811

PATIENT
  Age: 38 Year
  Sex: Male

DRUGS (3)
  1. METHYLPREDNISOLONE [Suspect]
     Indication: PUSTULAR PSORIASIS
     Route: 040
  2. CYCLOPHOSPHAMIDE [Suspect]
     Route: 040
  3. AZATHIOPRINE [Suspect]
     Indication: PUSTULAR PSORIASIS
     Route: 040

REACTIONS (9)
  - NEPHROTIC SYNDROME [None]
  - AMYLOIDOSIS [None]
  - MULTI-ORGAN FAILURE [None]
  - MOBILITY DECREASED [None]
  - HEPATOTOXICITY [None]
  - RENAL IMPAIRMENT [None]
  - OEDEMA PERIPHERAL [None]
  - SYNOVITIS [None]
  - RENAL FAILURE ACUTE [None]
